FAERS Safety Report 4365512-8 (Version None)
Quarter: 2004Q2

REPORT INFORMATION
  Report Type: 
  Country: None (occurrence: None)
  Receive Date: 20040526
  Receipt Date: 20030929
  Transmission Date: 20050107
  Serious: Yes (Hospitalization, Other)
  Sender: FDA-Public Use
  Company Number: US-GLAXOSMITHKLINE-A0428282A

PATIENT
  Age: 40 Year
  Sex: Female

DRUGS (4)
  1. PAXIL [Suspect]
     Indication: DEPRESSION
     Dosage: 10MG PER DAY
     Route: 048
     Dates: start: 19971007
  2. PEPCID [Concomitant]
  3. ZYRTEC [Concomitant]
  4. NEURONTIN [Concomitant]
     Dosage: 300MG AT NIGHT
     Route: 048

REACTIONS (5)
  - CHEST PAIN [None]
  - FATIGUE [None]
  - INTENTIONAL OVERDOSE [None]
  - RADIAL TUNNEL SYNDROME [None]
  - UPPER RESPIRATORY TRACT INFECTION [None]
